FAERS Safety Report 25660453 (Version 3)
Quarter: 2025Q3

REPORT INFORMATION
  Report Type: Spontaneous
  Country: VN (occurrence: VN)
  Receive Date: 20250808
  Receipt Date: 20250919
  Transmission Date: 20251020
  Serious: Yes (Hospitalization, Other)
  Sender: ASTELLAS
  Company Number: VN-ASTELLAS-2025-AER-042981

PATIENT
  Age: 42 Year
  Sex: Female

DRUGS (7)
  1. PROGRAF [Interacting]
     Active Substance: TACROLIMUS
     Indication: Immunosuppression
     Route: 048
     Dates: start: 20141106
  2. PROGRAF [Interacting]
     Active Substance: TACROLIMUS
     Dosage: FK DOSAGE WAS GRADUALLY REDUCED AND MAINTAINED AT A STABLE DOSE
     Route: 048
     Dates: start: 202501, end: 202501
  3. PROGRAF [Interacting]
     Active Substance: TACROLIMUS
     Route: 048
     Dates: start: 202501
  4. RIFAMPIN [Interacting]
     Active Substance: RIFAMPIN
     Indication: Disseminated tuberculosis
     Dosage: 150MGX3 TABLETS/ DAY
     Route: 048
     Dates: start: 2025
  5. BASILIXIMAB [Concomitant]
     Active Substance: BASILIXIMAB
     Indication: Immunosuppressant drug level
     Route: 065
  6. MYCOPHENOLATE MOFETIL [Concomitant]
     Active Substance: MYCOPHENOLATE MOFETIL
     Indication: Immunosuppression
     Dosage: ONGOING
     Route: 065
  7. METHYLPREDNISOLONE [Concomitant]
     Active Substance: METHYLPREDNISOLONE
     Indication: Product used for unknown indication
     Route: 065

REACTIONS (8)
  - Gout [Unknown]
  - Blood creatinine increased [Recovering/Resolving]
  - Toxicity to various agents [Recovering/Resolving]
  - Iron deficiency anaemia [Unknown]
  - Immunosuppressant drug level increased [Recovering/Resolving]
  - Disseminated tuberculosis [Unknown]
  - Drug hypersensitivity [Recovered/Resolved]
  - Drug interaction [Recovered/Resolved]

NARRATIVE: CASE EVENT DATE: 20250101
